FAERS Safety Report 5652265-6 (Version None)
Quarter: 2008Q1

REPORT INFORMATION
  Report Type: 
  Country: None (occurrence: None)
  Receive Date: 20080305
  Receipt Date: 20080207
  Transmission Date: 20080703
  Serious: No
  Sender: FDA-Public Use
  Company Number: US-BOEHRINGER INGELHEIM GMBH, GERMANY-2008-BP-01985BP

PATIENT
  Sex: Female

DRUGS (10)
  1. SPIRIVA [Suspect]
     Indication: ASTHMA
     Route: 055
     Dates: start: 20050101
  2. TENORMIN [Concomitant]
     Indication: HYPERTENSION
  3. ASPIRIN [Concomitant]
  4. PRAVACHOL [Concomitant]
     Indication: BLOOD CHOLESTEROL INCREASED
  5. EVISTA [Concomitant]
  6. AMBIEN [Concomitant]
  7. ACHIFEX [Concomitant]
     Indication: GASTROOESOPHAGEAL REFLUX DISEASE
  8. ACHIFEX [Concomitant]
     Indication: IRRITABLE BOWEL SYNDROME
  9. FLOVENT [Concomitant]
  10. ADVAIR DISKUS 100/50 [Concomitant]

REACTIONS (1)
  - DRY MOUTH [None]
